FAERS Safety Report 6395337-3 (Version None)
Quarter: 2009Q4

REPORT INFORMATION
  Report Type: 
  Country: None (occurrence: None)
  Receive Date: 20091009
  Receipt Date: 20091007
  Transmission Date: 20100525
  Serious: Yes (Hospitalization)
  Sender: FDA-Public Use
  Company Number: B0596993A

PATIENT
  Sex: Female

DRUGS (2)
  1. AUGMENTIN [Suspect]
     Indication: DRUG USE FOR UNKNOWN INDICATION
     Route: 065
     Dates: start: 20090827, end: 20090827
  2. NOVALGINA [Suspect]
     Indication: DRUG USE FOR UNKNOWN INDICATION
     Route: 048
     Dates: start: 20090827, end: 20090827

REACTIONS (2)
  - GENERALISED ERYTHEMA [None]
  - PRURITUS [None]
